FAERS Safety Report 10201236 (Version 1)
Quarter: 2014Q2

REPORT INFORMATION
  Report Type: Spontaneous
  Country: DK (occurrence: CH)
  Receive Date: 20140528
  Receipt Date: 20140528
  Transmission Date: 20141212
  Serious: Yes (Hospitalization)
  Sender: FDA-Public Use
  Company Number: CH-FRI-1000067594

PATIENT
  Sex: Female

DRUGS (20)
  1. ESCITALOPRAM [Suspect]
     Dosage: 20 MG
     Route: 048
  2. ESCITALOPRAM [Suspect]
     Dosage: 10 MG
     Route: 048
  3. DILZEM RR [Suspect]
     Indication: ANGINA PECTORIS
     Dosage: 90 MG
     Route: 048
     Dates: start: 20140203, end: 20140301
  4. ASPIRIN [Suspect]
     Indication: CORONARY ARTERY DISEASE
     Dosage: 100 MG
     Route: 048
     Dates: start: 20121025
  5. EFIENT [Suspect]
     Indication: CORONARY ARTERY DISEASE
     Dosage: 10 MG
     Route: 048
     Dates: start: 20130626, end: 20140301
  6. LEXOTANIL [Concomitant]
     Dosage: 6 MG
     Route: 048
  7. NITRODERM [Concomitant]
     Indication: CORONARY ARTERY DISEASE
     Dosage: 10 MG
     Route: 061
  8. ULCOGANT [Concomitant]
     Dosage: 1000 MG
     Route: 048
  9. LAXOBERON [Concomitant]
     Dosage: 10 MG
     Route: 048
  10. ISOKET [Concomitant]
     Dosage: 1.25 MG
     Route: 048
  11. BELOC ZOK [Concomitant]
     Indication: CORONARY ARTERY DISEASE
     Dosage: 25 MG
     Route: 048
  12. DANCOR [Concomitant]
     Indication: CORONARY ARTERY DISEASE
     Dosage: 20 MG
     Route: 048
  13. DIOVAN [Concomitant]
     Indication: HYPERTENSION
     Dosage: 80 MG
     Route: 048
  14. NEXIUM [Concomitant]
     Dosage: 40 MG
     Route: 048
  15. EZETROL [Concomitant]
     Dosage: 10 MG
     Route: 048
  16. RANEXA [Concomitant]
     Indication: CORONARY ARTERY DISEASE
     Dosage: 750 MG
     Route: 048
  17. ATORVASTATINE [Concomitant]
     Indication: DYSLIPIDAEMIA
     Dosage: 80 MG
     Route: 048
  18. LYRICA [Concomitant]
     Dosage: 75 MG
     Route: 048
  19. PARACETAMOL/ CODEIN [Concomitant]
     Route: 048
  20. NSAID [Concomitant]

REACTIONS (7)
  - Spontaneous haematoma [Recovered/Resolved]
  - Gingival bleeding [Recovered/Resolved]
  - Epistaxis [Recovered/Resolved]
  - Drug interaction [Recovered/Resolved]
  - Coronary artery disease [None]
  - Myocardial ischaemia [None]
  - Ventricular hypokinesia [None]
